FAERS Safety Report 11850758 (Version 1)
Quarter: 2015Q4

REPORT INFORMATION
  Report Type: Spontaneous
  Country: US (occurrence: US)
  Receive Date: 20151218
  Receipt Date: 20151218
  Transmission Date: 20160305
  Serious: No
  Sender: FDA-Public Use
  Company Number: US-JNJFOC-20151124143

PATIENT
  Sex: Female

DRUGS (2)
  1. MENS ROGAINE EXTRA STRENGTH [Suspect]
     Active Substance: MINOXIDIL
     Route: 061
  2. MENS ROGAINE EXTRA STRENGTH [Suspect]
     Active Substance: MINOXIDIL
     Indication: PRODUCT USED FOR UNKNOWN INDICATION
     Dosage: USED FOR ABOUT 5 YEARS AND STOPPED IN 2012
     Route: 061
     Dates: end: 2012

REACTIONS (3)
  - Alopecia [Unknown]
  - Wrong patient received medication [Unknown]
  - Off label use [Unknown]

NARRATIVE: CASE EVENT DATE: 2012
